FAERS Safety Report 26204564 (Version 2)
Quarter: 2025Q4

REPORT INFORMATION
  Report Type: Report from Study
  Country: EU (occurrence: EU)
  Receive Date: 20251227
  Receipt Date: 20251227
  Transmission Date: 20260118
  Serious: Yes (Other)
  Sender: AUROBINDO
  Company Number: EU-SA-2021SA200205

PATIENT
  Age: 72 Year
  Sex: Female

DRUGS (6)
  1. PREGABALIN [Interacting]
     Active Substance: PREGABALIN
     Indication: Orthostatic tremor
     Dosage: UNK
     Route: 065
  2. PREGABALIN [Interacting]
     Active Substance: PREGABALIN
     Indication: Tremor
  3. CLONAZEPAM [Interacting]
     Active Substance: CLONAZEPAM
     Indication: Orthostatic tremor
     Dosage: UNK
     Route: 065
  4. CLONAZEPAM [Interacting]
     Active Substance: CLONAZEPAM
     Indication: Tremor
  5. PERAMPANEL [Interacting]
     Active Substance: PERAMPANEL
     Indication: Orthostatic tremor
     Dosage: 2 MILLIGRAM, ONCE A DAY(FOR FIRST MONTH )
     Route: 065
  6. PERAMPANEL [Interacting]
     Active Substance: PERAMPANEL
     Dosage: 4 MILLIGRAM, ONCE A DAY (4 MG/DAY AFTER THE FIRST MONTH )
     Route: 065

REACTIONS (9)
  - Gait disturbance [Recovered/Resolved]
  - Orthostatic tremor [Unknown]
  - Rebound effect [Unknown]
  - Tremor [Recovered/Resolved]
  - Drug interaction [Unknown]
  - Impaired quality of life [Unknown]
  - Balance disorder [Unknown]
  - Off label use [Unknown]
  - Product use in unapproved indication [Unknown]
